FAERS Safety Report 12102419 (Version 4)
Quarter: 2016Q1

REPORT INFORMATION
  Report Type: Report from Study
  Country: IL (occurrence: IL)
  Receive Date: 20160222
  Receipt Date: 20160311
  Transmission Date: 20160526
  Serious: Yes (Hospitalization, Other)
  Sender: FDA-Public Use
  Company Number: IL-ABBVIE-16P-082-1561893-00

PATIENT
  Age: 66 Year
  Sex: Female

DRUGS (1)
  1. DUODOPA [Suspect]
     Active Substance: CARBIDOPA\LEVODOPA
     Indication: PARKINSON^S DISEASE
     Dosage: 3.6
     Route: 050
     Dates: start: 20160214

REACTIONS (7)
  - Abdominal pain [Recovered/Resolved]
  - Frequent bowel movements [Recovering/Resolving]
  - Flatulence [Unknown]
  - Peritonitis [Unknown]
  - Abdominal pain upper [Recovered/Resolved]
  - Abdominal pain lower [Recovered/Resolved]
  - Infrequent bowel movements [Unknown]

NARRATIVE: CASE EVENT DATE: 20160215
